FAERS Safety Report 4379363-1 (Version None)
Quarter: 2004Q2

REPORT INFORMATION
  Report Type: 
  Country: None (occurrence: None)
  Receive Date: 20040617
  Receipt Date: 20040521
  Transmission Date: 20050107
  Serious: Yes (Other)
  Sender: FDA-Public Use
  Company Number: GB-AMGEN-US078025

PATIENT
  Sex: Female

DRUGS (7)
  1. ENBREL [Suspect]
     Indication: DRUG USE FOR UNKNOWN INDICATION
     Route: 058
     Dates: start: 20030704, end: 20040517
  2. PREDNISOLONE [Concomitant]
  3. MISOPROSTOL [Concomitant]
  4. DIDRONEL [Concomitant]
  5. CALCIUM CARBONATE [Concomitant]
  6. CONJUGATED ESTROGENS/MEDROXYPROGESTERONE ACETATE [Concomitant]
  7. CHLORAMPHENICOL [Concomitant]

REACTIONS (1)
  - BREAST CANCER [None]
